FAERS Safety Report 20245327 (Version 1)
Quarter: 2021Q4

REPORT INFORMATION
  Report Type: Report from Study
  Country: CN (occurrence: CN)
  Receive Date: 20211229
  Receipt Date: 20211229
  Transmission Date: 20220303
  Serious: Yes (Other)
  Sender: FDA-Public Use
  Company Number: CN-Accord-248351

PATIENT

DRUGS (2)
  1. TEMOZOLOMIDE [Suspect]
     Active Substance: TEMOZOLOMIDE
     Indication: Leiomyosarcoma
     Dosage: (200 OR 300 MG) WAS ADMINISTERED EACH DAY ON DAYS 1 TO 5
     Route: 048
  2. EPIRUBICIN [Suspect]
     Active Substance: EPIRUBICIN
     Indication: Leiomyosarcoma
     Dosage: (60 MG/M2 ) WAS ADMINISTERED ON DAYS 1 TO 4
     Route: 042

REACTIONS (1)
  - Febrile neutropenia [Unknown]
